FAERS Safety Report 4590635-8 (Version None)
Quarter: 2005Q1

REPORT INFORMATION
  Report Type: 
  Country: None (occurrence: None)
  Receive Date: 20050218
  Receipt Date: 20050218
  Transmission Date: 20050727
  Serious: No
  Sender: FDA-Public Use
  Company Number: None

PATIENT
  Sex: Female
  Weight: 72.5755 kg

DRUGS (1)
  1. VANCOMYCIN [Suspect]
     Indication: CHRONIC SINUSITIS
     Dosage: 1GM IV  Q 12 HRS

REACTIONS (2)
  - THERAPY NON-RESPONDER [None]
  - THROMBOCYTOPENIA [None]
